FAERS Safety Report 21325760 (Version 1)
Quarter: 2022Q3

REPORT INFORMATION
  Report Type: Spontaneous
  Country: FR (occurrence: FR)
  Receive Date: 20220913
  Receipt Date: 20220913
  Transmission Date: 20221027
  Serious: Yes (Other)
  Sender: FDA-Public Use
  Company Number: FR-NOVARTISPH-NVSC2022FR205176

PATIENT
  Age: 87 Year
  Sex: Male

DRUGS (2)
  1. TRAMETINIB [Suspect]
     Active Substance: TRAMETINIB
     Indication: Malignant melanoma
     Dosage: 0.5 MG, QD
     Route: 065
  2. DABRAFENIB [Suspect]
     Active Substance: DABRAFENIB
     Indication: Malignant melanoma
     Dosage: 75 MG, QD
     Route: 065

REACTIONS (1)
  - Peripheral sensory neuropathy [Not Recovered/Not Resolved]
